FAERS Safety Report 11771641 (Version 1)
Quarter: 2015Q4

REPORT INFORMATION
  Report Type: Report from Study
  Country: US (occurrence: US)
  Receive Date: 20151124
  Receipt Date: 20151124
  Transmission Date: 20160304
  Serious: Yes (Hospitalization)
  Sender: FDA-Public Use
  Company Number: US-ROCHE-1665993

PATIENT
  Age: 76 Year
  Sex: Female

DRUGS (3)
  1. GEMCITABINE [Suspect]
     Active Substance: GEMCITABINE\GEMCITABINE HYDROCHLORIDE
     Indication: NON-SMALL CELL LUNG CANCER
     Dosage: OVER 30 MIN ON DAYS 1 AND 8
     Route: 042
     Dates: start: 20080702
  2. CISPLATIN. [Suspect]
     Active Substance: CISPLATIN
     Indication: NON-SMALL CELL LUNG CANCER
     Dosage: OVER 60 MIN ON DAYS 1
     Route: 042
     Dates: start: 20080702
  3. BEVACIZUMAB [Suspect]
     Active Substance: BEVACIZUMAB
     Indication: NON-SMALL CELL LUNG CANCER
     Dosage: OVER 30-90 MIN ON DAY 1 AND AFTER 4 CYCLES ONCE IN 3 WEEKS FOR UP TO 1 YEAR.?DATE OF LAST DOSE PRIOR
     Route: 042
     Dates: start: 20080702

REACTIONS (2)
  - Confusional state [Recovering/Resolving]
  - Hypertension [Unknown]

NARRATIVE: CASE EVENT DATE: 20081212
